FAERS Safety Report 15348245 (Version 2)
Quarter: 2018Q3

REPORT INFORMATION
  Report Type: Spontaneous
  Country: GB (occurrence: GB)
  Receive Date: 20180904
  Receipt Date: 20180920
  Transmission Date: 20181010
  Serious: Yes (Hospitalization, Other)
  Sender: FDA-Public Use
  Company Number: GB-GLAXOSMITHKLINE-GB2018GSK159160

PATIENT
  Age: 70 Year
  Sex: Female

DRUGS (1)
  1. SERETIDE [Suspect]
     Active Substance: FLUTICASONE PROPIONATE\SALMETEROL XINAFOATE
     Indication: CHRONIC OBSTRUCTIVE PULMONARY DISEASE
     Dosage: UNK, 125

REACTIONS (23)
  - Pruritus [Unknown]
  - Skin disorder [Unknown]
  - Malaise [Recovered/Resolved]
  - Pharyngeal disorder [Unknown]
  - Visual acuity reduced [Unknown]
  - Heart rate increased [Recovered/Resolved]
  - Contusion [Unknown]
  - Pharyngitis [Recovered/Resolved]
  - Loss of consciousness [Unknown]
  - Balance disorder [Unknown]
  - Rhinorrhoea [Unknown]
  - Headache [Unknown]
  - Product use in unapproved indication [Unknown]
  - Fall [Unknown]
  - Heart rate irregular [Unknown]
  - Dizziness [Unknown]
  - Pyrexia [Recovered/Resolved]
  - Blood calcium normal [Unknown]
  - Aphonia [Unknown]
  - Dysphonia [Not Recovered/Not Resolved]
  - Swollen tongue [Unknown]
  - Gait disturbance [Unknown]
  - Off label use [Unknown]

NARRATIVE: CASE EVENT DATE: 2016
